FAERS Safety Report 5646032-7 (Version None)
Quarter: 2008Q1

REPORT INFORMATION
  Report Type: 
  Country: None (occurrence: None)
  Receive Date: 20080229
  Receipt Date: 20080217
  Transmission Date: 20080703
  Serious: Yes (Other)
  Sender: FDA-Public Use
  Company Number: US-PFIZER INC-2008016253

PATIENT
  Sex: Female
  Weight: 82 kg

DRUGS (37)
  1. CHANTIX [Suspect]
     Indication: SMOKING CESSATION THERAPY
     Dates: start: 20070101, end: 20080212
  2. KLOR-CON [Concomitant]
  3. MAGNESIUM [Concomitant]
  4. AVAPRO [Concomitant]
  5. HYDROCHLOROTHIAZIDE [Concomitant]
  6. PROTONIX [Concomitant]
  7. ZYRTEC [Concomitant]
  8. ZYRTEC [Concomitant]
  9. TOPAMAX [Concomitant]
  10. TOPAMAX [Concomitant]
  11. TRAZODONE HCL [Concomitant]
  12. TRAZODONE HCL [Concomitant]
  13. BECONASE AQUA [Concomitant]
  14. BECONASE AQUA [Concomitant]
  15. ASTELIN [Concomitant]
  16. ASTELIN [Concomitant]
  17. ZETIA [Concomitant]
  18. ZETIA [Concomitant]
  19. VICODIN [Concomitant]
  20. VICODIN [Concomitant]
  21. MIDRIN [Concomitant]
  22. MIDRIN [Concomitant]
  23. HYDROXYZINE [Concomitant]
  24. HYDROXYZINE [Concomitant]
  25. LORAZEPAM [Concomitant]
  26. LORAZEPAM [Concomitant]
  27. DAILY VITAMINS [Concomitant]
  28. DAILY VITAMINS [Concomitant]
  29. CALCIUM WITH VITAMIN D [Concomitant]
  30. CALCIUM WITH VITAMIN D [Concomitant]
  31. VITAMIN D [Concomitant]
  32. VITAMIN D [Concomitant]
  33. CHONDROITIN/GLUCOSAMINE [Concomitant]
  34. ALBUTEROL [Concomitant]
     Indication: ASTHMA
  35. ATROVENT [Concomitant]
     Indication: ASTHMA
  36. ALBUTEROL [Concomitant]
  37. FLOVENT [Concomitant]
     Indication: ASTHMA

REACTIONS (9)
  - ABNORMAL DREAMS [None]
  - DECREASED APPETITE [None]
  - DEPRESSED MOOD [None]
  - FATIGUE [None]
  - MALAISE [None]
  - MANIA [None]
  - MEMORY IMPAIRMENT [None]
  - MIDDLE INSOMNIA [None]
  - SOMNOLENCE [None]
